FAERS Safety Report 4984579-7 (Version None)
Quarter: 2006Q2

REPORT INFORMATION
  Report Type: 
  Country: None (occurrence: None)
  Receive Date: 20060426
  Receipt Date: 20060426
  Transmission Date: 20061013
  Serious: Yes (Hospitalization)
  Sender: FDA-Public Use
  Company Number: None

PATIENT
  Age: 58 Year
  Sex: Male
  Weight: 103.4201 kg

DRUGS (9)
  1. ASPIRIN [Suspect]
     Indication: CORONARY ARTERY DISEASE
     Dosage: 81 MG DAILY
     Dates: start: 20050516, end: 20060124
  2. ACCU-CHECK CONFORT CV [Concomitant]
  3. ATORVASTATIN CALCIUM [Concomitant]
  4. CLOTRIMAZOLE [Concomitant]
  5. FLUNISOLIDE [Concomitant]
  6. HYDRALAZINE HCL [Concomitant]
  7. HUMULIN N [Concomitant]
  8. ISOSRBIDE MONITRATE [Concomitant]
  9. GLIPIZIDE [Concomitant]

REACTIONS (3)
  - ASTHENIA [None]
  - DIZZINESS [None]
  - GASTROINTESTINAL HAEMORRHAGE [None]
